FAERS Safety Report 25945882 (Version 1)
Quarter: 2025Q4

REPORT INFORMATION
  Report Type: Report from Study
  Country: US (occurrence: US)
  Receive Date: 20251021
  Receipt Date: 20251021
  Transmission Date: 20260118
  Serious: Yes (Hospitalization, Other)
  Sender: EISAI
  Company Number: US-Eisai-EC-2025-198320

PATIENT
  Age: 54 Year
  Sex: Female
  Weight: 77.3 kg

DRUGS (23)
  1. LENVIMA [Suspect]
     Active Substance: LENVATINIB
     Indication: Salivary gland cancer
     Route: 048
     Dates: start: 2025, end: 2025
  2. MARY^S MAGIC MOUTHWASH [Concomitant]
  3. MIRENA [Concomitant]
     Active Substance: LEVONORGESTREL
  4. ALBUTEROL [Concomitant]
     Active Substance: ALBUTEROL
  5. METOPROLOL [Concomitant]
     Active Substance: METOPROLOL
  6. TYLENOL PM EXTRA STRENGTH [Concomitant]
     Active Substance: ACETAMINOPHEN\DIPHENHYDRAMINE HYDROCHLORIDE
  7. ZOLEDRONIC ACID [Concomitant]
     Active Substance: ZOLEDRONIC ACID
  8. BAVENCIO [Concomitant]
     Active Substance: AVELUMAB
  9. ELIQUIS [Concomitant]
     Active Substance: APIXABAN
  10. POTASSIUM [Concomitant]
     Active Substance: POTASSIUM
  11. LASIX [Concomitant]
     Active Substance: FUROSEMIDE
  12. NYSTATIN [Concomitant]
     Active Substance: NYSTATIN
  13. SUMATRIPTAN [Concomitant]
     Active Substance: SUMATRIPTAN
  14. ATROPINE\DIPHENOXYLATE [Concomitant]
     Active Substance: ATROPINE\DIPHENOXYLATE
  15. ONDANSETRON [Concomitant]
     Active Substance: ONDANSETRON
  16. PROCHLORPERAZINE [Concomitant]
     Active Substance: PROCHLORPERAZINE
  17. MARINOL [Concomitant]
     Active Substance: DRONABINOL
  18. OMEPRAZOLE [Concomitant]
     Active Substance: OMEPRAZOLE
  19. ACETAMINOPHEN\HYDROCODONE [Concomitant]
     Active Substance: ACETAMINOPHEN\HYDROCODONE
  20. GABAPENTIN [Concomitant]
     Active Substance: GABAPENTIN
  21. LEVOTHYROXINE [Concomitant]
     Active Substance: LEVOTHYROXINE
  22. LEXAPRO [Concomitant]
     Active Substance: ESCITALOPRAM OXALATE
  23. EFFEXOR XR [Concomitant]
     Active Substance: VENLAFAXINE HYDROCHLORIDE

REACTIONS (6)
  - Ejection fraction decreased [Unknown]
  - Pleural effusion [Unknown]
  - Intestinal perforation [Unknown]
  - Hepatic failure [Unknown]
  - Internal hernia [Unknown]
  - Self-injurious ideation [Recovered/Resolved]

NARRATIVE: CASE EVENT DATE: 20250301
